FAERS Safety Report 10042803 (Version 4)
Quarter: 2016Q2

REPORT INFORMATION
  Report Type: Report from Study
  Country: JP (occurrence: JP)
  Receive Date: 20140327
  Receipt Date: 20160616
  Transmission Date: 20160815
  Serious: Yes (Life-Threatening, Hospitalization, Other)
  Sender: FDA-Public Use
  Company Number: JP-GILEAD-2014-0097674

PATIENT
  Age: 41 Year
  Sex: Female
  Weight: 39 kg

DRUGS (33)
  1. ALFAROL [Concomitant]
     Active Substance: ALFACALCIDOL
     Route: 048
  2. MARZULENE [Concomitant]
     Active Substance: SODIUM GUALENATE
     Dosage: UNK
  3. AMBRISENTAN [Suspect]
     Active Substance: AMBRISENTAN
     Dosage: 2.5 MG, QD
     Route: 048
     Dates: start: 20120612
  4. KERATINAMIN KOWA                   /05674101/ [Concomitant]
     Dosage: UNK
  5. AMBRISENTAN [Suspect]
     Active Substance: AMBRISENTAN
     Dosage: 2.5 MG, QD
     Route: 048
     Dates: start: 20120521, end: 20120522
  6. AMBRISENTAN [Suspect]
     Active Substance: AMBRISENTAN
     Dosage: 2.5 MG, QD
     Route: 048
     Dates: start: 20120612, end: 20131112
  7. PARIET [Concomitant]
     Active Substance: RABEPRAZOLE SODIUM
     Dosage: UNK
     Route: 048
  8. FERROMIA [Concomitant]
     Active Substance: FERROUS CITRATE
     Dosage: UNK
  9. SAMSCA [Concomitant]
     Active Substance: TOLVAPTAN
     Dosage: UNK
  10. UNKNOWN DRUG [Concomitant]
     Active Substance: UNSPECIFIED INGREDIENT
     Route: 048
     Dates: start: 20120810
  11. FERROMIA (JAPAN) [Concomitant]
     Dosage: UNK
     Dates: start: 20130530
  12. AMBRISENTAN [Suspect]
     Active Substance: AMBRISENTAN
     Indication: PULMONARY ARTERIAL HYPERTENSION
     Dosage: 5 MG, QD
     Route: 048
     Dates: start: 20120611
  13. PREDONINE [Suspect]
     Active Substance: PREDNISOLONE\PREDNISOLONE ACETATE\PREDNISOLONE SODIUM SUCCINATE
     Dosage: 15 MG, QD
  14. PREDONINE [Suspect]
     Active Substance: PREDNISOLONE\PREDNISOLONE ACETATE\PREDNISOLONE SODIUM SUCCINATE
     Route: 048
  15. SLOW-K [Concomitant]
     Active Substance: POTASSIUM CHLORIDE
     Indication: PROPHYLAXIS
     Dosage: UNK
     Route: 048
  16. PARIET [Concomitant]
     Active Substance: RABEPRAZOLE SODIUM
     Dosage: UNK
     Route: 048
  17. GASMOTIN [Concomitant]
     Active Substance: MOSAPRIDE CITRATE
     Route: 048
     Dates: start: 20120809
  18. GLAKAY [Concomitant]
     Active Substance: MENATETRENONE
     Dosage: UNK
     Dates: start: 20130612
  19. KERATINAMIN KOWA CREAM [Concomitant]
     Dosage: UNK
     Dates: start: 20130214
  20. SLOW-K [Concomitant]
     Active Substance: POTASSIUM CHLORIDE
     Dosage: UNK
     Route: 048
     Dates: end: 20130617
  21. FUROSEMIDE. [Concomitant]
     Active Substance: FUROSEMIDE
     Dosage: UNK
  22. RIKKUNSHITOU [Concomitant]
     Dosage: UNK
  23. ALFAROL [Concomitant]
     Active Substance: ALFACALCIDOL
     Indication: OSTEOPOROSIS PROPHYLAXIS
     Dosage: UNK
     Route: 048
  24. FUROSEMIDE. [Concomitant]
     Active Substance: FUROSEMIDE
     Dosage: UNK
  25. GLAKAY [Concomitant]
     Active Substance: MENATETRENONE
     Dosage: UNK
  26. LIVACT                             /00847901/ [Concomitant]
     Active Substance: ISOLEUCINE\LEUCINE\VALINE
     Dosage: UNK
  27. MARZULENE                          /00317302/ [Concomitant]
     Dosage: UNK
  28. AMBRISENTAN [Suspect]
     Active Substance: AMBRISENTAN
     Dosage: 5 MG, QD
     Route: 048
     Dates: start: 20120523, end: 20120611
  29. LIVACT [Concomitant]
     Active Substance: AMINO ACIDS
     Dosage: UNK
  30. NEXIUM [Concomitant]
     Active Substance: ESOMEPRAZOLE MAGNESIUM
     Dosage: UNK
  31. PREDONINE [Suspect]
     Active Substance: PREDNISOLONE\PREDNISOLONE ACETATE\PREDNISOLONE SODIUM SUCCINATE
     Indication: PRODUCT USED FOR UNKNOWN INDICATION
     Route: 048
  32. PRIMPERAN [Concomitant]
     Active Substance: METOCLOPRAMIDE HYDROCHLORIDE
     Dosage: UNK
     Route: 048
     Dates: start: 20120214
  33. NEXIUM [Concomitant]
     Active Substance: ESOMEPRAZOLE MAGNESIUM
     Dosage: UNK

REACTIONS (14)
  - Oesophageal varices haemorrhage [Recovering/Resolving]
  - Haemorrhagic anaemia [Recovering/Resolving]
  - Epilepsy [Recovering/Resolving]
  - Oesophageal varices haemorrhage [Recovering/Resolving]
  - Haemorrhagic anaemia [Recovering/Resolving]
  - Hepatic function abnormal [Recovering/Resolving]
  - Oesophageal varices haemorrhage [Recovering/Resolving]
  - Subdural haematoma [Recovering/Resolving]
  - Off label use [Unknown]
  - Oesophageal varices haemorrhage [Recovering/Resolving]
  - Ascites [Recovering/Resolving]
  - Haemorrhagic anaemia [Recovering/Resolving]
  - Haemorrhagic anaemia [Recovering/Resolving]
  - Systemic candida [Recovered/Resolved]

NARRATIVE: CASE EVENT DATE: 20120611
